FAERS Safety Report 19193297 (Version 4)
Quarter: 2021Q4

REPORT INFORMATION
  Report Type: Report from Study
  Country: US (occurrence: US)
  Receive Date: 20210429
  Receipt Date: 20211102
  Transmission Date: 20220303
  Serious: No
  Sender: FDA-Public Use
  Company Number: NVSC2021US096696

PATIENT
  Sex: Female

DRUGS (1)
  1. ENTRESTO [Suspect]
     Active Substance: SACUBITRIL\VALSARTAN
     Indication: Product used for unknown indication
     Dosage: 1 DF, BID (24/26MG)
     Route: 048

REACTIONS (10)
  - Dyspnoea [Recovered/Resolved]
  - Peripheral swelling [Unknown]
  - Eye swelling [Unknown]
  - Blood potassium decreased [Unknown]
  - Skin swelling [Unknown]
  - Nasal congestion [Unknown]
  - Weight increased [Unknown]
  - Fatigue [Unknown]
  - Asthenia [Recovered/Resolved]
  - Cough [Unknown]

NARRATIVE: CASE EVENT DATE: 20210101
